FAERS Safety Report 8768918 (Version 2)
Quarter: 2012Q4

REPORT INFORMATION
  Report Type: 
  Country: JP (occurrence: JP)
  Receive Date: 20120904
  Receipt Date: 20121207
  Transmission Date: 20130627
  Serious: Yes (Hospitalization)
  Sender: FDA-Public Use
  Company Number: JP-009507513-1207JPN000062

PATIENT
  Age: 67 Year
  Sex: Female
  Weight: 59 kg

DRUGS (31)
  1. PEGINTRON [Suspect]
     Indication: HEPATITIS C
     Dosage: 1.5mcg/kg/week
     Route: 058
     Dates: start: 20120124, end: 20120224
  2. PEGINTRON [Suspect]
     Dosage: 1.1mcg/kg/week
     Route: 058
     Dates: start: 20120326, end: 20120621
  3. PEGINTRON [Suspect]
     Dosage: 1.4mcg/kg/week
     Route: 058
     Dates: start: 20120622
  4. PEGINTRON [Suspect]
     Dosage: 1.1mcg/kg/week
     Route: 058
     Dates: start: 20120326
  5. REBETOL [Suspect]
     Indication: HEPATITIS C
     Dosage: 600 mg, qd
     Route: 048
     Dates: start: 20120124, end: 20120207
  6. REBETOL [Suspect]
     Dosage: 400 mg, qd
     Route: 048
     Dates: start: 20120208, end: 20120220
  7. REBETOL [Suspect]
     Dosage: 200 mg, qd
     Route: 048
     Dates: start: 20120221, end: 20120301
  8. REBETOL [Suspect]
     Dosage: 200 mg, qd
     Route: 048
     Dates: start: 20120326, end: 20120404
  9. REBETOL [Suspect]
     Dosage: 400mg/day, 200mg/day alternately
     Route: 048
     Dates: start: 20120405, end: 20120419
  10. REBETOL [Suspect]
     Dosage: 400 mg, qd
     Route: 048
     Dates: start: 20120420, end: 20120614
  11. REBETOL [Suspect]
     Dosage: 600 mg, qd
     Route: 048
     Dates: start: 20120615
  12. REBETOL [Suspect]
     Dosage: UNK
  13. REBETOL [Suspect]
     Dosage: 400 mg, qd
     Route: 048
     Dates: start: 20120208, end: 20120220
  14. REBETOL [Suspect]
     Dosage: 200 mg, qd
     Route: 048
     Dates: start: 20120221, end: 20120301
  15. REBETOL [Suspect]
     Dosage: 200 mg, qd
     Route: 048
     Dates: start: 20120326, end: 20120404
  16. REBETOL [Suspect]
     Dosage: 200 mg/day and 400 mg/day on alternate days
     Route: 048
     Dates: start: 20120405
  17. TELAPREVIR [Suspect]
     Indication: HEPATITIS C
     Dosage: UNK UNK, Once
     Route: 048
     Dates: start: 20120124, end: 20120130
  18. TELAPREVIR [Suspect]
     Dosage: UNK UNK, qd
     Route: 048
     Dates: start: 20120131, end: 20120220
  19. TELAPREVIR [Suspect]
     Dosage: UNK UNK, qd
     Route: 048
     Dates: start: 20120221, end: 20120301
  20. TELAPREVIR [Suspect]
     Dosage: 1250 mg, Once
     Route: 048
     Dates: start: 20120326, end: 20120404
  21. TELAPREVIR [Suspect]
     Dosage: 250 mg/day and 500 mg/day on alternate days
     Route: 048
     Dates: start: 20120405
  22. TELAVIC [Suspect]
     Indication: HEPATITIS C
     Dosage: UNK UNK, Once
     Route: 048
     Dates: start: 20120124, end: 20120130
  23. TELAVIC [Suspect]
     Dosage: UNK UNK, Once
     Route: 048
     Dates: start: 20120131, end: 20120220
  24. TELAVIC [Suspect]
     Dosage: UNK UNK, Once
     Route: 048
     Dates: start: 20120221, end: 20120301
  25. TELAVIC [Suspect]
     Dosage: UNK UNK, Once
     Route: 048
     Dates: start: 20120326, end: 20120404
  26. TELAVIC [Suspect]
     Dosage: Alternation in every 500mg/day of day during 250mg/day
     Route: 048
     Dates: start: 20120405, end: 20120501
  27. VOLTAREN [Concomitant]
     Indication: PYREXIA
     Dosage: as needed
     Route: 054
     Dates: start: 20120124
  28. MAGMITT [Concomitant]
     Indication: CONSTIPATION
     Route: 048
     Dates: start: 20120125
  29. NAUZELIN [Concomitant]
     Indication: NAUSEA
     Dosage: 3 DF, Once
     Route: 048
     Dates: start: 20120223, end: 20120327
  30. NAUZELIN [Concomitant]
     Dosage: 3 DF, Once
     Route: 048
  31. NAUZELIN [Concomitant]
     Dosage: 3 DF, Once
     Route: 048

REACTIONS (3)
  - Decreased appetite [Recovered/Resolved]
  - Anaemia [Not Recovered/Not Resolved]
  - Decreased appetite [Recovered/Resolved]
